FAERS Safety Report 5405131-5 (Version None)
Quarter: 2007Q3

REPORT INFORMATION
  Report Type: 
  Country: None (occurrence: None)
  Receive Date: 20070803
  Receipt Date: 20070726
  Transmission Date: 20080115
  Serious: Yes (Other)
  Sender: FDA-Public Use
  Company Number: JP-MERCK-0707USA05032

PATIENT

DRUGS (2)
  1. HYZAAR [Suspect]
     Indication: HYPERTENSION
     Route: 048
     Dates: start: 20070428, end: 20070620
  2. ALLOPURINOL [Concomitant]
     Indication: GOUT
     Route: 065
     Dates: start: 20020101

REACTIONS (1)
  - RHABDOMYOLYSIS [None]
